FAERS Safety Report 4850559-5 (Version None)
Quarter: 2005Q4

REPORT INFORMATION
  Report Type: 
  Country: None (occurrence: None)
  Receive Date: 20051212
  Receipt Date: 20050616
  Transmission Date: 20060501
  Serious: Yes (Death, Hospitalization)
  Sender: FDA-Public Use
  Company Number: JP-BOEHRINGER INGELHEIM PHARMACEUTICALS, INC.-2005-BP-10210NB

PATIENT
  Age: 96 Year
  Sex: Female

DRUGS (5)
  1. MICARDIS [Suspect]
     Indication: HYPERTENSION
     Route: 048
     Dates: start: 20040615
  2. DEPROMEL [Concomitant]
     Indication: DEPRESSION
     Route: 048
     Dates: start: 19990614
  3. HORIZON [Concomitant]
     Indication: VERTIGO
     Route: 048
     Dates: start: 19990614
  4. CEROCRAL [Concomitant]
     Indication: VERTIGO
     Route: 048
     Dates: start: 19990614
  5. JUVELA N [Concomitant]
     Indication: HYPERLIPIDAEMIA
     Route: 048
     Dates: start: 19990614

REACTIONS (1)
  - PANCREATIC CARCINOMA [None]
